FAERS Safety Report 5485070-4 (Version None)
Quarter: 2007Q4

REPORT INFORMATION
  Report Type: 
  Country: None (occurrence: None)
  Receive Date: 20071015
  Receipt Date: 20071009
  Transmission Date: 20080405
  Serious: Yes (Other)
  Sender: FDA-Public Use
  Company Number: PHNU2007DE03377

PATIENT
  Age: 64 Year
  Sex: Male

DRUGS (1)
  1. ZOMETA [Suspect]
     Indication: METASTASES TO BONE
     Dosage: 4 MG, QMO
     Route: 042
     Dates: start: 20060101, end: 20070101

REACTIONS (4)
  - DENTAL OPERATION [None]
  - IMPAIRED HEALING [None]
  - OPEN WOUND [None]
  - OSTEONECROSIS [None]
